FAERS Safety Report 6314646-7 (Version None)
Quarter: 2009Q3

REPORT INFORMATION
  Report Type: 
  Country: None (occurrence: None)
  Receive Date: 20090817
  Receipt Date: 20090817
  Transmission Date: 20100115
  Serious: No
  Sender: FDA-Public Use
  Company Number: None

PATIENT
  Age: 54 Year
  Sex: Male
  Weight: 86.1834 kg

DRUGS (1)
  1. VENLAFAXINE SA 75 MG UNKNOWND [Suspect]
     Indication: GENERALISED ANXIETY DISORDER
     Dosage: 75 MG EACH DAY PO
     Route: 048
     Dates: start: 20090425, end: 20090812

REACTIONS (2)
  - DRUG INEFFECTIVE [None]
  - PRODUCT SUBSTITUTION ISSUE [None]
